FAERS Safety Report 11118108 (Version 2)
Quarter: 2015Q2

REPORT INFORMATION
  Report Type: Spontaneous
  Country: JP (occurrence: JP)
  Receive Date: 20150518
  Receipt Date: 20150629
  Transmission Date: 20150821
  Serious: Yes (Other)
  Sender: FDA-Public Use
  Company Number: JP-SUN PHARMACEUTICAL INDUSTRIES LTD-2015RR-97435

PATIENT

DRUGS (17)
  1. DIAZEPAM. [Suspect]
     Active Substance: DIAZEPAM
     Indication: PARTIAL SEIZURES
     Dosage: UNK
     Route: 054
  2. CARBAMAZEPINE. [Suspect]
     Active Substance: CARBAMAZEPINE
     Indication: PARTIAL SEIZURES
     Dosage: UNK
     Route: 048
  3. ACYCLOVIR. [Suspect]
     Active Substance: ACYCLOVIR
     Indication: ENCEPHALITIS
     Dosage: UNK
     Route: 042
  4. PHENYTOIN. [Suspect]
     Active Substance: PHENYTOIN
     Indication: PARTIAL SEIZURES
     Dosage: UNK
     Route: 048
  5. PHENYTOIN. [Suspect]
     Active Substance: PHENYTOIN
     Indication: PARTIAL SEIZURES
     Dosage: 23.5 UG/ML
     Route: 065
  6. THIAMYLAL SODIUM [Suspect]
     Active Substance: THIAMYLAL SODIUM
     Indication: PARTIAL SEIZURES
     Dosage: 5 MG/KG/H
     Route: 042
  7. ISOFLURANE. [Suspect]
     Active Substance: ISOFLURANE
     Indication: PARTIAL SEIZURES
     Dosage: UNK
     Route: 055
  8. VALPROIC ACID. [Suspect]
     Active Substance: VALPROIC ACID
     Indication: PARTIAL SEIZURES
     Dosage: UNK
     Route: 065
  9. THIAMYLAL SODIUM [Suspect]
     Active Substance: THIAMYLAL SODIUM
     Dosage: 2 MG/KG/H
     Route: 042
  10. ACETAZOLAMIDE. [Suspect]
     Active Substance: ACETAZOLAMIDE
     Indication: PARTIAL SEIZURES
     Dosage: UNK
     Route: 042
  11. ZONISAMIDE. [Suspect]
     Active Substance: ZONISAMIDE
     Indication: PARTIAL SEIZURES
     Dosage: UNK
     Route: 048
  12. MINOCYCLINE [Suspect]
     Active Substance: MINOCYCLINE\MINOCYCLINE HYDROCHLORIDE
     Indication: PNEUMONIA
     Dosage: UNK
     Route: 042
  13. PHENOBARBITAL. [Suspect]
     Active Substance: PHENOBARBITAL
     Indication: PARTIAL SEIZURES
     Dosage: 14.3 UG/ML
     Route: 065
  14. MIDAZOLAM [Suspect]
     Active Substance: MIDAZOLAM\MIDAZOLAM HYDROCHLORIDE
     Indication: PARTIAL SEIZURES
     Dosage: 0.5 MG/KG/H
     Route: 042
  15. CHLORAL HYDRATE [Suspect]
     Active Substance: CHLORAL HYDRATE
     Indication: PARTIAL SEIZURES
     Dosage: UNK
     Route: 054
  16. LIDOCAINE. [Suspect]
     Active Substance: LIDOCAINE
     Indication: PARTIAL SEIZURES
     Dosage: 4 MG/KG/H
     Route: 042
  17. CLONAZEPAM. [Suspect]
     Active Substance: CLONAZEPAM
     Indication: PARTIAL SEIZURES
     Dosage: UNK
     Route: 048

REACTIONS (5)
  - Renal impairment [Unknown]
  - Urine output decreased [Unknown]
  - Hepatic function abnormal [Unknown]
  - Hypotension [Unknown]
  - Drug ineffective [Unknown]
